FAERS Safety Report 5418422-9 (Version None)
Quarter: 2007Q3

REPORT INFORMATION
  Report Type: 
  Country: None (occurrence: None)
  Receive Date: 20070718
  Receipt Date: 20060830
  Transmission Date: 20080115
  Serious: Yes (Hospitalization, Other)
  Sender: FDA-Public Use
  Company Number: 2005155002

PATIENT
  Age: 43 Year
  Sex: Male
  Weight: 82.5547 kg

DRUGS (6)
  1. CELEBREX [Suspect]
     Indication: RHEUMATOID ARTHRITIS
     Dosage: 400 MG (200 MG, 2 IN 1 D)
     Dates: start: 20040915, end: 20050112
  2. ACETYLSALICYLIC ACID SRT [Concomitant]
  3. PRILOSEC [Concomitant]
  4. LORTAB [Concomitant]
  5. PROTONIX [Concomitant]
  6. FLONASE [Concomitant]

REACTIONS (1)
  - CORONARY ARTERY DISEASE [None]
